FAERS Safety Report 5258311-6 (Version None)
Quarter: 2007Q1

REPORT INFORMATION
  Report Type: 
  Country: None (occurrence: None)
  Receive Date: 20070308
  Receipt Date: 20070228
  Transmission Date: 20070707
  Serious: Yes (Other)
  Sender: FDA-Public Use
  Company Number: JP-NOVOPROD-260894

PATIENT
  Sex: Male
  Weight: 45 kg

DRUGS (3)
  1. NOVORAPID 30 MIX CHU FLEXPEN [Suspect]
     Indication: DIABETES MELLITUS
     Dosage: 15 IU, QD
     Route: 058
     Dates: start: 20070202, end: 20070213
  2. ODRIC [Concomitant]
     Dosage: 1 MG, QD
     Route: 048
     Dates: start: 20070202, end: 20070213
  3. LIPITOR [Concomitant]
     Dosage: 10 MG, QD
     Route: 048
     Dates: start: 20070202, end: 20070213

REACTIONS (1)
  - HEPATIC FUNCTION ABNORMAL [None]
